FAERS Safety Report 22379927 (Version 1)
Quarter: 2023Q2

REPORT INFORMATION
  Report Type: Spontaneous
  Country: US (occurrence: US)
  Receive Date: 20230529
  Receipt Date: 20230529
  Transmission Date: 20230721
  Serious: No
  Sender: FDA-Public Use
  Company Number: US-TEVA-2023-US-2887353

PATIENT
  Sex: Female

DRUGS (1)
  1. COPAXONE [Suspect]
     Active Substance: GLATIRAMER ACETATE
     Indication: Product used for unknown indication
     Dosage: FORM STRENGTH: UNKNOWN
     Route: 065

REACTIONS (7)
  - Arthralgia [Unknown]
  - Myalgia [Unknown]
  - Injection site reaction [Unknown]
  - Disturbance in attention [Unknown]
  - Gait inability [Unknown]
  - Fatigue [Unknown]
  - Asthenia [Unknown]
